FAERS Safety Report 8117216-3 (Version None)
Quarter: 2012Q1

REPORT INFORMATION
  Report Type: 
  Country: None (occurrence: None)
  Receive Date: 20120206
  Receipt Date: 20120201
  Transmission Date: 20120608
  Serious: Yes (Death)
  Sender: FDA-Public Use
  Company Number: RU-ASTRAZENECA-2011SE68024

PATIENT
  Age: 72 Year
  Sex: Male

DRUGS (1)
  1. DIPRIVAN [Suspect]
     Indication: ANAESTHESIA
     Route: 042
     Dates: start: 20111013

REACTIONS (3)
  - CARDIAC ARREST [None]
  - APNOEA [None]
  - CYANOSIS [None]
